FAERS Safety Report 14997269 (Version 1)
Quarter: 2018Q2

REPORT INFORMATION
  Report Type: Spontaneous
  Country: GB (occurrence: GB)
  Receive Date: 20180611
  Receipt Date: 20180611
  Transmission Date: 20180711
  Serious: Yes (Other)
  Sender: FDA-Public Use
  Company Number: PHHY2018GB017491

PATIENT
  Sex: Male

DRUGS (4)
  1. TRAVATAN [Suspect]
     Active Substance: TRAVOPROST
     Indication: GLAUCOMA
     Route: 065
  2. COSOPT [Concomitant]
     Active Substance: DORZOLAMIDE HYDROCHLORIDE\TIMOLOL MALEATE
     Indication: GLAUCOMA
     Route: 065
  3. DIAMOX SEQUELS [Suspect]
     Active Substance: ACETAZOLAMIDE
     Indication: INTRAOCULAR PRESSURE INCREASED
     Dosage: 250 MG, UNK
     Route: 065
  4. BRIMONIDINE TARTRATE. [Concomitant]
     Active Substance: BRIMONIDINE TARTRATE
     Indication: PRODUCT USED FOR UNKNOWN INDICATION
     Route: 065

REACTIONS (13)
  - Abnormal loss of weight [Unknown]
  - Asthenia [Unknown]
  - Memory impairment [Unknown]
  - Confusional state [Unknown]
  - Eczema [Unknown]
  - Impetigo [Unknown]
  - Pollakiuria [Unknown]
  - Hair texture abnormal [Unknown]
  - Fatigue [Unknown]
  - Cellulitis [Unknown]
  - Erythema [Unknown]
  - Skin discolouration [Unknown]
  - Rash pruritic [Unknown]
